FAERS Safety Report 4365631-6 (Version None)
Quarter: 2004Q2

REPORT INFORMATION
  Report Type: 
  Country: None (occurrence: None)
  Receive Date: 20040526
  Receipt Date: 20040526
  Transmission Date: 20050107
  Serious: Yes (Hospitalization)
  Sender: FDA-Public Use
  Company Number: None

PATIENT
  Sex: Female

DRUGS (4)
  1. GABAPENTIN [Suspect]
     Indication: PAIN
     Dosage: 600-900 MG TID-QID ORAL
     Route: 048
     Dates: start: 20031212, end: 20040504
  2. OXYCONTIN [Concomitant]
  3. DECADRON [Concomitant]
  4. VIOXX [Concomitant]

REACTIONS (2)
  - HYPOXIA [None]
  - RESPIRATORY DISORDER [None]
